FAERS Safety Report 18596380 (Version 1)
Quarter: 2020Q4

REPORT INFORMATION
  Report Type: Spontaneous
  Country: HU (occurrence: HU)
  Receive Date: 20201209
  Receipt Date: 20201209
  Transmission Date: 20210114
  Serious: Yes (Other)
  Sender: FDA-Public Use
  Company Number: HU-PFIZER INC-2020481196

PATIENT
  Age: 42 Year
  Sex: Female

DRUGS (3)
  1. REVATIO [Suspect]
     Active Substance: SILDENAFIL CITRATE
     Indication: PULMONARY ARTERIAL HYPERTENSION
     Dosage: UNK
     Dates: start: 201004
  2. OXYGEN. [Concomitant]
     Active Substance: OXYGEN
     Dates: start: 2010
  3. OPSUMIT [Suspect]
     Active Substance: MACITENTAN
     Indication: PULMONARY ARTERIAL HYPERTENSION
     Dosage: UNK
     Route: 065
     Dates: start: 201608

REACTIONS (3)
  - Condition aggravated [Unknown]
  - Pulmonary arterial hypertension [Unknown]
  - Lymphangioleiomyomatosis [Unknown]

NARRATIVE: CASE EVENT DATE: 202006
